FAERS Safety Report 22070284 (Version 2)
Quarter: 2025Q1

REPORT INFORMATION
  Report Type: Spontaneous
  Country: US (occurrence: US)
  Receive Date: 20230307
  Receipt Date: 20250226
  Transmission Date: 20250408
  Serious: No
  Sender: PFIZER
  Company Number: US-PFIZER INC-2020099660

PATIENT
  Age: 71 Year
  Sex: Female

DRUGS (2)
  1. IBRANCE [Suspect]
     Active Substance: PALBOCICLIB
     Indication: Metastatic neoplasm
  2. LETROZOLE [Concomitant]
     Active Substance: LETROZOLE
     Indication: Metastatic neoplasm
     Dosage: 2.5 MG, 1X/DAY

REACTIONS (1)
  - Body height decreased [Unknown]
